FAERS Safety Report 8105642-8 (Version None)
Quarter: 2012Q1

REPORT INFORMATION
  Report Type: 
  Country: None (occurrence: None)
  Receive Date: 20120201
  Receipt Date: 20120123
  Transmission Date: 20120608
  Serious: Yes (Other)
  Sender: FDA-Public Use
  Company Number: CHPA2012US001907

PATIENT
  Age: 78 Year
  Sex: Female

DRUGS (2)
  1. EXCEDRIN EXTRA STRENGTH TABLETS [Suspect]
     Indication: HEADACHE
     Dosage: 2 DF, ONCE/SINGLE
     Route: 048
     Dates: start: 20120101, end: 20120101
  2. EXCEDRIN EXTRA STRENGTH TABLETS [Suspect]
     Dosage: 2 DF, ONCE/SINGLE
     Route: 048
     Dates: start: 20120101, end: 20120101

REACTIONS (1)
  - EYE HAEMORRHAGE [None]
